FAERS Safety Report 12172758 (Version 2)
Quarter: 2016Q1

REPORT INFORMATION
  Report Type: Spontaneous
  Country: ES (occurrence: ES)
  Receive Date: 20160311
  Receipt Date: 20160328
  Transmission Date: 20160526
  Serious: No
  Sender: FDA-Public Use
  Company Number: ES-GILEAD-2016-0201390

PATIENT
  Sex: Female

DRUGS (1)
  1. CAYSTON [Suspect]
     Active Substance: AZTREONAM
     Indication: CYSTIC FIBROSIS
     Route: 045

REACTIONS (3)
  - Wrong device used [Unknown]
  - Off label use [Unknown]
  - Sinusitis [Unknown]
